FAERS Safety Report 16992335 (Version 1)
Quarter: 2019Q4

REPORT INFORMATION
  Report Type: Spontaneous
  Country: IN (occurrence: IN)
  Receive Date: 20191105
  Receipt Date: 20191105
  Transmission Date: 20200122
  Serious: Yes (Hospitalization, Other)
  Sender: FDA-Public Use
  Company Number: IN-LUPIN LIMITED-2019-04901

PATIENT
  Age: 88 Year
  Sex: Male

DRUGS (3)
  1. CEFTRIAXONE INJECTION [Suspect]
     Active Substance: CEFTRIAXONE SODIUM
     Indication: CHRONIC ACTINIC DERMATITIS
  2. CEFTRIAXONE INJECTION [Suspect]
     Active Substance: CEFTRIAXONE SODIUM
     Indication: DERMATITIS EXFOLIATIVE GENERALISED
     Dosage: 1 GRAM, BID
     Route: 042
  3. CEFTRIAXONE INJECTION [Suspect]
     Active Substance: CEFTRIAXONE SODIUM
     Indication: SKIN INFECTION

REACTIONS (1)
  - Aplastic anaemia [Recovered/Resolved]
